FAERS Safety Report 6598832-7 (Version None)
Quarter: 2010Q1

REPORT INFORMATION
  Report Type: 
  Country: None (occurrence: None)
  Receive Date: 20100212
  Receipt Date: 20090921
  Transmission Date: 20100710
  Serious: No
  Sender: FDA-Public Use
  Company Number: 2009-00609

PATIENT
  Age: 30 Year
  Sex: Male
  Weight: 113.3993 kg

DRUGS (1)
  1. ZICAM COLD REMEDY NASAL GEL [Suspect]
     Dosage: COLD SYMPTOMS
     Dates: start: 20090701

REACTIONS (2)
  - AGEUSIA [None]
  - ANOSMIA [None]
